FAERS Safety Report 19089270 (Version 3)
Quarter: 2021Q4

REPORT INFORMATION
  Report Type: Report from Study
  Country: KE (occurrence: KE)
  Receive Date: 20210403
  Receipt Date: 20211230
  Transmission Date: 20220303
  Serious: Yes (Other)
  Sender: FDA-Public Use
  Company Number: KE-CIPLA LTD.-2021KE02474

PATIENT

DRUGS (4)
  1. LOPINAVIR\RITONAVIR [Suspect]
     Active Substance: LOPINAVIR\RITONAVIR
     Indication: HIV infection WHO clinical stage I
     Dosage: 3 DOSAGE FORM, BID (120 MG/30 MG TWICE DAILY)
     Route: 048
     Dates: start: 20170925, end: 20180910
  2. ABACAVIR\LAMIVUDINE [Suspect]
     Active Substance: ABACAVIR\LAMIVUDINE
     Indication: HIV infection WHO clinical stage I
     Dosage: 1.5 DOSAGE FORM, BID (90 MG/45MG BID)
     Route: 048
     Dates: start: 20170925, end: 20180910
  3. BACTRIM [Concomitant]
     Active Substance: SULFAMETHOXAZOLE\TRIMETHOPRIM
     Indication: Prophylaxis
     Dosage: 240 MILLIGRAM, DAILY
     Route: 065
     Dates: start: 20160617, end: 20180316
  4. BACTRIM [Concomitant]
     Active Substance: SULFAMETHOXAZOLE\TRIMETHOPRIM
     Dosage: UNK
     Route: 065
     Dates: start: 2018

REACTIONS (6)
  - Hepatitis A [Recovered/Resolved]
  - Upper respiratory tract infection [Recovered/Resolved]
  - Nasopharyngitis [Recovered/Resolved]
  - Impetigo [Recovered/Resolved]
  - Dermatitis atopic [Recovered/Resolved]
  - Anaemia [Recovering/Resolving]

NARRATIVE: CASE EVENT DATE: 20171020
